FAERS Safety Report 8903998 (Version 2)
Quarter: 2017Q2

REPORT INFORMATION
  Report Type: Spontaneous
  Country: FR (occurrence: FR)
  Receive Date: 20121112
  Receipt Date: 20170423
  Transmission Date: 20170830
  Serious: Yes (Hospitalization)
  Sender: FDA-Public Use
  Company Number: FR-BAXTER-2012BAX022491

PATIENT
  Age: 68 Year
  Sex: Female

DRUGS (6)
  1. ENDOXAN 1000 MG, POUDRE POUR SOLUTION INJECTABLE [Suspect]
     Active Substance: CYCLOPHOSPHAMIDE
     Dosage: THIRD COURSE OF CHEMOTHERAPY
     Route: 042
     Dates: start: 20120904
  2. ENDOXAN 1000 MG, POUDRE POUR SOLUTION INJECTABLE [Suspect]
     Active Substance: CYCLOPHOSPHAMIDE
     Indication: PRODUCT USED FOR UNKNOWN INDICATION
     Dosage: FIRST COURSE OF CHEMOTHERAPY
     Route: 042
     Dates: start: 20120724
  3. ENDOXAN 1000 MG, POUDRE POUR SOLUTION INJECTABLE [Suspect]
     Active Substance: CYCLOPHOSPHAMIDE
     Dosage: SECOND COURSE OF CHEMOTHERAPY
     Route: 042
     Dates: start: 20120814
  4. TAXOTERE [Suspect]
     Active Substance: DOCETAXEL
     Indication: PRODUCT USED FOR UNKNOWN INDICATION
     Dosage: FIRST COURSE OF CHEMOTHERAPY
     Route: 042
     Dates: start: 20120724
  5. TAXOTERE [Suspect]
     Active Substance: DOCETAXEL
     Dosage: SECOND COURSE OF CHEMOTHERAPY
     Route: 042
     Dates: start: 20120814
  6. TAXOTERE [Suspect]
     Active Substance: DOCETAXEL
     Dosage: THIRD COURSE OF CHEMOTHERAPY
     Route: 042
     Dates: start: 20120904

REACTIONS (3)
  - Colitis [Unknown]
  - Febrile bone marrow aplasia [Unknown]
  - Septic shock [Unknown]

NARRATIVE: CASE EVENT DATE: 20120913
